FAERS Safety Report 7103845 (Version 3)
Quarter: 2014Q3

REPORT INFORMATION
  Report Type: Spontaneous
  Country: US (occurrence: None)
  Receive Date: 20090820
  Receipt Date: 20140701
  Transmission Date: 20150326
  Serious: Yes (Hospitalization, Other)
  Sender: FDA-Public Use
  Company Number: 2009S1006520

PATIENT
  Age: 50 Year
  Sex: Female
  Weight: 66.68 kg

DRUGS (9)
  1. LEXAPRO (ESCITALOPRAM) [Concomitant]
  2. HUMALOG [Concomitant]
     Active Substance: INSULIN LISPRO
  3. LANTUS [Concomitant]
     Active Substance: INSULIN GLARGINE
  4. WELLBUTRIN [Concomitant]
     Active Substance: BUPROPION HYDROCHLORIDE
  5. PLETAL [Concomitant]
     Active Substance: CILOSTAZOL
  6. PHOSPHO-SODA [Suspect]
     Active Substance: SODIUM PHOSPHATE, DIBASIC\SODIUM PHOSPHATE, MONOBASIC
     Indication: COLONOSCOPY
     Dosage: 45 ML; X1; PO
     Route: 048
     Dates: start: 20040611, end: 20040611
  7. COZAAR (LOSARTAN POTASSIUM) [Concomitant]
  8. DYAZIDE (HYDROCHLOROTHIAZIDE, TRIAMTERENE) [Concomitant]
  9. ADVIL [Concomitant]
     Active Substance: IBUPROFEN

REACTIONS (15)
  - Diarrhoea [None]
  - Fatigue [None]
  - Nephrocalcinosis [None]
  - Nephrogenic anaemia [None]
  - Renal failure acute [None]
  - Diabetic nephropathy [None]
  - Hyperparathyroidism secondary [None]
  - Abdominal pain [None]
  - Dialysis [None]
  - Renal transplant [None]
  - Fluid retention [None]
  - Tubulointerstitial nephritis [None]
  - Renal tubular necrosis [None]
  - Renal failure chronic [None]
  - Hyponatraemia [None]

NARRATIVE: CASE EVENT DATE: 20040618
